FAERS Safety Report 5870171-9 (Version None)
Quarter: 2008Q3

REPORT INFORMATION
  Report Type: 
  Country: None (occurrence: None)
  Receive Date: 20080904
  Receipt Date: 20080825
  Transmission Date: 20090109
  Serious: Yes (Other)
  Sender: FDA-Public Use
  Company Number: US-PFIZER INC-2008071269

PATIENT
  Sex: Male

DRUGS (5)
  1. PROCARDIA XL [Suspect]
     Indication: BLOOD PRESSURE
     Route: 048
     Dates: start: 20080101, end: 20080801
  2. TOPROL-XL [Concomitant]
     Dosage: DAILY DOSE:12.5MG
     Route: 048
  3. ALTACE [Concomitant]
     Route: 048
  4. ACETYLSALICYLIC ACID SRT [Concomitant]
     Indication: VASCULAR GRAFT
     Route: 048
  5. VYTORIN [Concomitant]
     Indication: BLOOD CHOLESTEROL INCREASED
     Route: 048

REACTIONS (3)
  - ARTHRALGIA [None]
  - MOBILITY DECREASED [None]
  - MUSCLE SPASMS [None]
